FAERS Safety Report 20979325 (Version 1)
Quarter: 2022Q2

REPORT INFORMATION
  Report Type: Spontaneous
  Country: BR (occurrence: None)
  Receive Date: 20220620
  Receipt Date: 20220620
  Transmission Date: 20220721
  Serious: Yes (Hospitalization)
  Sender: FDA-Public Use
  Company Number: BR-ROCHE-3116300

PATIENT
  Age: 93 Year
  Sex: Female

DRUGS (2)
  1. MABTHERA [Suspect]
     Active Substance: RITUXIMAB
     Indication: Non-Hodgkin^s lymphoma
     Route: 065
     Dates: start: 20201110
  2. MABTHERA [Suspect]
     Active Substance: RITUXIMAB
     Indication: B-cell small lymphocytic lymphoma

REACTIONS (3)
  - Hypertension [Recovered/Resolved]
  - Dyspnoea [Recovered/Resolved]
  - Pulmonary oedema [Recovered/Resolved]

NARRATIVE: CASE EVENT DATE: 20201110
